FAERS Safety Report 7833031-X (Version None)
Quarter: 2011Q4

REPORT INFORMATION
  Report Type: 
  Country: None (occurrence: None)
  Receive Date: 20111024
  Receipt Date: 20111014
  Transmission Date: 20120403
  Serious: Yes (Hospitalization)
  Sender: FDA-Public Use
  Company Number: JP-BAYER-2011-027130

PATIENT
  Age: 73 Year
  Sex: Male
  Weight: 61 kg

DRUGS (30)
  1. ANTEBATE [Concomitant]
     Indication: PALMAR-PLANTAR ERYTHRODYSAESTHESIA SYNDROME
     Dosage: UNK
     Route: 061
     Dates: start: 20100311
  2. DIAZEPAM [Concomitant]
     Dosage: DAILY DOSE 1 MG
     Route: 048
     Dates: start: 20100323, end: 20100531
  3. SORAFENIB (RAF KINASE INHIBITOR) [Suspect]
     Indication: HEPATIC NEOPLASM MALIGNANT
     Dosage: 800 MG, BID
     Route: 048
     Dates: start: 20100310, end: 20100411
  4. SORAFENIB (RAF KINASE INHIBITOR) [Suspect]
     Dosage: DAILY DOSE 800 MG
     Dates: start: 20100914, end: 20110126
  5. LASIX [Concomitant]
     Dosage: DAILY DOSE 20 MG
     Route: 048
     Dates: start: 20100517, end: 20100628
  6. ALDACTONE [Concomitant]
     Dosage: DAILY DOSE 25 MG
     Route: 048
     Dates: start: 20100517, end: 20100628
  7. UREPEARL [Concomitant]
     Dosage: UNK
     Route: 061
     Dates: start: 20100308
  8. MONILAC [Concomitant]
     Dosage: DAILY DOSE 30 ML
     Route: 048
     Dates: start: 20100403, end: 20100516
  9. SORAFENIB (RAF KINASE INHIBITOR) [Suspect]
     Dosage: DAILY DOSE 800 MG
     Dates: start: 20100614, end: 20100905
  10. UFT [Concomitant]
     Dosage: DAILY DOSE 300 MG
     Route: 048
     Dates: start: 20100215, end: 20100223
  11. TRANEXAMIC ACID [Concomitant]
     Dosage: DAILY DOSE 750 MG
     Route: 048
     Dates: start: 20091214, end: 20100118
  12. LASIX [Concomitant]
     Dosage: DAILY DOSE 40 MG
     Route: 048
     Dates: start: 20081023, end: 20100403
  13. MONILAC [Concomitant]
     Dosage: DAILY DOSE 30 ML
     Route: 048
     Dates: start: 20100517, end: 20100520
  14. LASIX [Concomitant]
     Dosage: DAILY DOSE 20 MG
     Route: 048
     Dates: start: 20100404, end: 20100426
  15. MYSER [Concomitant]
     Dosage: UNK
     Route: 061
     Dates: start: 20100308
  16. KANAMYCIN [Concomitant]
     Dosage: DAILY DOSE 750 MG
     Route: 048
     Dates: start: 20100403, end: 20100531
  17. KANAMYCIN [Concomitant]
     Dosage: DAILY DOSE 750 MG
     Route: 048
     Dates: start: 20100321, end: 20100531
  18. CEFAZOLIN SODIUM [Concomitant]
     Dosage: DAILY DOSE 3 G
     Route: 048
     Dates: start: 20100712, end: 20100725
  19. SORAFENIB (RAF KINASE INHIBITOR) [Suspect]
     Dosage: DAILY DOSE 400 MG
     Dates: start: 20110319, end: 20110325
  20. FERROUS CITRATE [Concomitant]
     Dosage: DAILY DOSE 100 MG
     Route: 048
     Dates: start: 20091214, end: 20100118
  21. SORAFENIB (RAF KINASE INHIBITOR) [Suspect]
     Dosage: DAILY DOSE 800 MG
     Dates: start: 20100420, end: 20100607
  22. FLOMOX [Concomitant]
     Dosage: DAILY DOSE 300 MG
     Route: 048
     Dates: start: 20091224, end: 20091228
  23. PURSENNID [Concomitant]
     Dosage: DAILY DOSE 12 MG
     Route: 048
     Dates: start: 20091221, end: 20091221
  24. OMEPRAZOLE [Concomitant]
     Dosage: DAILY DOSE 20 MG
     Route: 048
     Dates: start: 20100319, end: 20100403
  25. AMINOLEBAN EN [Concomitant]
     Dosage: DAILY DOSE 200 MG
     Route: 048
     Dates: start: 20100329, end: 20100404
  26. FAMOTIDINE [Concomitant]
     Dosage: DAILY DOSE 20 MG
     Route: 048
     Dates: start: 20100726, end: 20101128
  27. ALDACTONE [Concomitant]
     Dosage: DAILY DOSE 50 MG
     Route: 048
     Dates: start: 20081020
  28. LEVOFLOXACIN [Concomitant]
     Dosage: DAILY DOSE 500 MG
     Route: 048
     Dates: start: 20100309, end: 20100311
  29. TORSEMIDE [Concomitant]
     Dosage: DAILY DOSE 8 MG
     Route: 048
     Dates: start: 20100517, end: 20101128
  30. ALLEGRA [Concomitant]
     Dosage: DAILY DOSE 120 MG
     Route: 048
     Dates: start: 20100927, end: 20101013

REACTIONS (10)
  - HEPATIC ENCEPHALOPATHY [None]
  - WEIGHT DECREASED [None]
  - PLEURAL EFFUSION [None]
  - AMMONIA INCREASED [None]
  - RASH [None]
  - DYSPNOEA [None]
  - GASTRIC ULCER [None]
  - BLOOD URIC ACID INCREASED [None]
  - PALMAR-PLANTAR ERYTHRODYSAESTHESIA SYNDROME [None]
  - DIARRHOEA [None]
